FAERS Safety Report 11595142 (Version 3)
Quarter: 2015Q4

REPORT INFORMATION
  Report Type: Spontaneous
  Country: JP (occurrence: JP)
  Receive Date: 20151006
  Receipt Date: 20151028
  Transmission Date: 20160304
  Serious: Yes (Hospitalization, Other)
  Sender: FDA-Public Use
  Company Number: JP-009507513-1510JPN001184

PATIENT
  Age: 41 Year
  Sex: Female
  Weight: 51.2 kg

DRUGS (9)
  1. TELAVIC [Suspect]
     Active Substance: TELAPREVIR
     Dosage: 1500 MG, QD DIVIDED DOSE FREQUENCY UNKNOWN
     Route: 048
     Dates: start: 20130903, end: 20131011
  2. REBETOL [Suspect]
     Active Substance: RIBAVIRIN
     Indication: CHRONIC HEPATITIS C
     Dosage: DAILY DOSAGE UNKNOWN
     Route: 048
     Dates: end: 20130722
  3. PEGINTRON [Suspect]
     Active Substance: PEGINTERFERON ALFA-2B
     Dosage: DIVIDED DOSE FREQUENCY UNKNOWN
     Route: 058
     Dates: start: 20130903, end: 20131011
  4. REBETOL [Suspect]
     Active Substance: RIBAVIRIN
     Dosage: 400 MG, QD DIVIDED DOSE FREQUENCY UNKNOWN
     Route: 048
     Dates: start: 20130723, end: 20130805
  5. PEGINTRON [Suspect]
     Active Substance: PEGINTERFERON ALFA-2B
     Dosage: DAILY DOSAGE UNKNOWN
     Route: 058
     Dates: end: 20130820
  6. REBETOL [Suspect]
     Active Substance: RIBAVIRIN
     Dosage: 200 MG, QD DIVIDED DOSE FREQUENCY UNKNOWN
     Dates: start: 20130806, end: 20130820
  7. PEGINTRON [Suspect]
     Active Substance: PEGINTERFERON ALFA-2B
     Indication: CHRONIC HEPATITIS C
     Dosage: DAILY DOSAGE UNKNOWN
     Route: 058
  8. REBETOL [Suspect]
     Active Substance: RIBAVIRIN
     Dosage: 200 MG, QD DIVIDED DOSE FREQUENCY UNKNOWN
     Dates: start: 20130903, end: 20131011
  9. TELAVIC [Suspect]
     Active Substance: TELAPREVIR
     Indication: CHRONIC HEPATITIS C
     Dosage: DAILY DOSAGE UNKNOWN
     Route: 048
     Dates: end: 20130820

REACTIONS (9)
  - Pancytopenia [Recovered/Resolved]
  - Insomnia [Recovered/Resolved]
  - Renal impairment [Recovered/Resolved]
  - Malaise [Recovered/Resolved]
  - Irritability [Recovered/Resolved]
  - Nausea [Recovered/Resolved]
  - Decreased appetite [Recovered/Resolved]
  - Lymph node tuberculosis [Recovering/Resolving]
  - Anaemia [Recovering/Resolving]

NARRATIVE: CASE EVENT DATE: 20130711
